FAERS Safety Report 22531799 (Version 1)
Quarter: 2023Q2

REPORT INFORMATION
  Report Type: Spontaneous
  Country: US (occurrence: None)
  Receive Date: 20230606
  Receipt Date: 20230606
  Transmission Date: 20230721
  Serious: No
  Sender: FDA-Public Use
  Company Number: None

PATIENT
  Sex: Female

DRUGS (15)
  1. CAPECITABINE [Suspect]
     Active Substance: CAPECITABINE
     Indication: Breast cancer female
     Dosage: 3T BID  PO 14D ON/7D OFF?
     Route: 050
     Dates: start: 202204, end: 20230526
  2. DEXAMETHASONE [Concomitant]
  3. CARVEDILOL [Concomitant]
  4. LORAZEPAM [Concomitant]
  5. DULOXETINE [Concomitant]
  6. ASPIRIN [Concomitant]
  7. FAMOTIDINE [Concomitant]
     Active Substance: FAMOTIDINE
  8. ACETAMINOPHEN\HYDROCODONE [Concomitant]
     Active Substance: ACETAMINOPHEN\HYDROCODONE
  9. ABILIFY [Concomitant]
     Active Substance: ARIPIPRAZOLE
  10. TRAZODONE [Concomitant]
  11. LIDOCAINE [Concomitant]
  12. ONDANSETRON [Concomitant]
  13. PROCHLORPERAZINE [Concomitant]
  14. ATROPINE [Concomitant]
     Active Substance: ATROPINE
  15. AMMONIUM LACTATE [Suspect]
     Active Substance: AMMONIUM LACTATE

REACTIONS (4)
  - Diarrhoea [None]
  - Influenza [None]
  - Apparent death [None]
  - Disease complication [None]
